FAERS Safety Report 19195210 (Version 1)
Quarter: 2021Q2

REPORT INFORMATION
  Report Type: Spontaneous
  Country: SE (occurrence: SE)
  Receive Date: 20210429
  Receipt Date: 20210429
  Transmission Date: 20210717
  Serious: Yes (Other)
  Sender: FDA-Public Use
  Company Number: SE-TEVA-2021-SE-1905399

PATIENT
  Age: 49 Year
  Sex: Male

DRUGS (20)
  1. MOVICOL [Concomitant]
     Active Substance: POLYETHYLENE GLYCOL 3350\POTASSIUM CHLORIDE\SODIUM BICARBONATE\SODIUM CHLORIDE
     Dates: start: 20210327
  2. ONDANSETRON [Concomitant]
     Active Substance: ONDANSETRON
     Dates: start: 20210323
  3. NALOXONHYDROKKLORID [Concomitant]
     Dates: start: 20210327, end: 20210329
  4. ATORVASTATIN [Concomitant]
     Active Substance: ATORVASTATIN
     Dates: start: 20210324, end: 20210329
  5. ULTIVA [Concomitant]
     Active Substance: REMIFENTANIL HYDROCHLORIDE
     Dates: start: 20210326, end: 20210327
  6. PROPOFOL. [Concomitant]
     Active Substance: PROPOFOL
     Dates: start: 20210326, end: 20210327
  7. TROMBYL [Concomitant]
     Active Substance: ASPIRIN
     Dates: start: 20210324, end: 20210326
  8. ESOMEPRAZOLE. [Suspect]
     Active Substance: ESOMEPRAZOLE MAGNESIUM
     Indication: PROPHYLAXIS AGAINST GASTROINTESTINAL ULCER
     Dosage: STRENGTH 40 MG AND 20 MG RESPECTIVELY?INTRAVENOUS / ORAL
     Route: 065
     Dates: start: 20210327, end: 20210329
  9. PARACETAMOL [Suspect]
     Active Substance: ACETAMINOPHEN
     Indication: PYREXIA
  10. KLEXANE [Suspect]
     Active Substance: ENOXAPARIN
     Indication: THROMBOSIS PROPHYLAXIS
     Dosage: STRENGTH 4000?DOSAGE 0.4
     Route: 058
     Dates: start: 20210325, end: 20210326
  11. SOLUVIT [Concomitant]
     Active Substance: VITAMINS
     Dates: start: 20210324, end: 20210326
  12. FURIX [Concomitant]
     Dates: start: 20210327
  13. CEFOTAXIME [Suspect]
     Active Substance: CEFOTAXIME SODIUM
     Indication: INFECTION
     Dosage: STRENGTH 1
     Route: 042
     Dates: start: 20210327, end: 20210330
  14. CLOXACILLIN [Concomitant]
     Active Substance: CLOXACILLIN
     Dates: start: 20210323, end: 20210326
  15. OXYCODONE [Concomitant]
     Active Substance: OXYCODONE
     Dates: start: 20210323
  16. PARACETAMOL [Suspect]
     Active Substance: ACETAMINOPHEN
     Indication: PAIN
     Dosage: INTRAVENOUS / ORAL, 4GM
     Route: 065
     Dates: start: 20210323, end: 20210329
  17. VITALIPID ADULT [Concomitant]
     Active Substance: ERGOCALCIFEROL\PHYTONADIONE\RETINOL\TOCOPHEROL
     Dates: start: 20210324, end: 20210326
  18. KABIVEN [Concomitant]
     Active Substance: AMINO ACIDS\ANHYDROUS DEXTROSE\CALCIUM CHLORIDE\MAGNESIUM SULFATE HEPTAHYDRATE\POTASSIUM CHLORIDE\SODIUM ACETATE\SODIUM GLYCEROPHOSPHATE ANHYDROUS\SOYBEAN OIL
     Dates: start: 20210324, end: 20210326
  19. ADDAVEN [Concomitant]
     Active Substance: ELECTROLYTES NOS\MINERALS
     Dates: start: 20210324, end: 20210326
  20. CILAXORAL [Concomitant]
     Active Substance: SODIUM PICOSULFATE
     Dates: start: 20210326

REACTIONS (1)
  - Hepatic enzyme increased [Not Recovered/Not Resolved]

NARRATIVE: CASE EVENT DATE: 20210328
